FAERS Safety Report 13017242 (Version 2)
Quarter: 2016Q4

REPORT INFORMATION
  Report Type: Spontaneous
  Country: JP (occurrence: JP)
  Receive Date: 20161212
  Receipt Date: 20161227
  Transmission Date: 20170207
  Serious: Yes (Death, Hospitalization, Other)
  Sender: FDA-Public Use
  Company Number: JP-PFIZER INC-2016430460

PATIENT
  Age: 83 Year
  Sex: Female
  Weight: 24 kg

DRUGS (11)
  1. AMLODIPINE [Concomitant]
     Active Substance: AMLODIPINE BESYLATE
     Indication: HYPERTENSION
     Dosage: 1 DF, 1X/DAY
     Route: 048
     Dates: end: 20160701
  2. RHEUMATREX [Suspect]
     Active Substance: METHOTREXATE SODIUM
     Indication: RHEUMATOID ARTHRITIS
     Dosage: 1 DF, 2X/DAY
     Route: 048
     Dates: end: 20160701
  3. PREDNISOLONE. [Concomitant]
     Active Substance: PREDNISOLONE
     Dosage: 2 DF, 2X/DAY
     Route: 048
     Dates: end: 20160701
  4. CELECOX [Concomitant]
     Active Substance: CELECOXIB
     Dosage: 1 DF, 2X/DAY
     Route: 048
     Dates: end: 20160701
  5. CILOSTAZOL. [Suspect]
     Active Substance: CILOSTAZOL
     Dosage: 1 DF, 2X/DAY
     Route: 048
     Dates: end: 20160701
  6. MEVALOTIN [Concomitant]
     Active Substance: PRAVASTATIN SODIUM
     Indication: HYPERLIPIDAEMIA
     Dosage: 1 DF, 1X/DAY
     Route: 048
     Dates: end: 20160701
  7. NEXIUM [Suspect]
     Active Substance: ESOMEPRAZOLE MAGNESIUM
     Dosage: 1 DF, 1X/DAY
     Route: 048
     Dates: end: 20160701
  8. BIOFERMIN R [Concomitant]
     Active Substance: BACILLUS SUBTILIS\LACTOBACILLUS ACIDOPHILUS\STREPTOCOCCUS FAECAIS
     Dosage: 1 DF, 3X/DAY
     Route: 048
     Dates: end: 20160701
  9. BAYASPIRIN [Concomitant]
     Active Substance: ASPIRIN
     Dosage: 1 DF, 1X/DAY
     Route: 048
     Dates: end: 20160701
  10. REBAMIPIDE [Concomitant]
     Active Substance: REBAMIPIDE
     Dosage: 1 DF, 2X/DAY
     Route: 048
     Dates: end: 20160701
  11. MAGMITT [Concomitant]
     Active Substance: MAGNESIUM OXIDE
     Dosage: 1 DF, 1X/DAY
     Route: 048
     Dates: end: 20160701

REACTIONS (6)
  - Mouth haemorrhage [Unknown]
  - Hypophagia [Unknown]
  - Pancytopenia [Fatal]
  - Febrile neutropenia [Fatal]
  - Pyrexia [Unknown]
  - Nausea [Unknown]

NARRATIVE: CASE EVENT DATE: 20160528
